FAERS Safety Report 9174556 (Version 1)
Quarter: 2013Q1

REPORT INFORMATION
  Report Type: Spontaneous
  Country: GB (occurrence: None)
  Receive Date: 20130318
  Receipt Date: 20130318
  Transmission Date: 20140127
  Serious: Yes (Other)
  Sender: FDA-Public Use
  Company Number: 2013P1003079

PATIENT
  Age: 28 Year
  Sex: Female

DRUGS (1)
  1. SULFAMETHOXAZOLE AND TRIMETHOPRIM [Suspect]

REACTIONS (5)
  - Drug reaction with eosinophilia and systemic symptoms [None]
  - Eosinophilia [None]
  - Face oedema [None]
  - Pyrexia [None]
  - Aspartate aminotransferase increased [None]
